FAERS Safety Report 14983137 (Version 2)
Quarter: 2018Q3

REPORT INFORMATION
  Report Type: Report from Study
  Country: FR (occurrence: FR)
  Receive Date: 20180607
  Receipt Date: 20180702
  Transmission Date: 20181010
  Serious: Yes (Hospitalization, Other)
  Sender: FDA-Public Use
  Company Number: FR-ACCORD-067791

PATIENT
  Age: 61 Year
  Sex: Female
  Weight: 49 kg

DRUGS (4)
  1. AVASTIN [Suspect]
     Active Substance: BEVACIZUMAB
     Indication: COLORECTAL CANCER METASTATIC
     Dosage: 2 CYCLE CHEMOTHERAPY DOSE 250?3 CYCLE OF  CHEMOTHERAPY DATE 11?JUL?2017
     Dates: start: 20160613
  2. FOLINIC ACID [Suspect]
     Active Substance: LEUCOVORIN
     Indication: PRODUCT USED FOR UNKNOWN INDICATION
     Route: 065
     Dates: start: 20160613
  3. OXALIPLATIN. [Suspect]
     Active Substance: OXALIPLATIN
     Indication: COLORECTAL CANCER METASTATIC
     Dosage: 3 CYCLE OF CHEMOTHERAPY ON 11?JUL?2016
     Route: 065
     Dates: start: 20160613
  4. FLUOROURACIL. [Suspect]
     Active Substance: FLUOROURACIL
     Indication: COLORECTAL CANCER METASTATIC
     Dosage: 3 CYCLE OF CHEMOTHERAPY ON 11?JUL?2016
     Route: 065
     Dates: start: 20160613

REACTIONS (2)
  - Appendicitis [Recovered/Resolved]
  - Neutropenia [Recovered/Resolved]

NARRATIVE: CASE EVENT DATE: 20160719
